FAERS Safety Report 7055787-9 (Version None)
Quarter: 2010Q4

REPORT INFORMATION
  Report Type: 
  Country: None (occurrence: None)
  Receive Date: 20101018
  Receipt Date: 20100930
  Transmission Date: 20110411
  Serious: Yes (Hospitalization, Other)
  Sender: FDA-Public Use
  Company Number: ACO_02486_2010

PATIENT
  Sex: Male

DRUGS (4)
  1. AMPYRA [Suspect]
     Indication: PRODUCT USED FOR UNKNOWN INDICATION
     Dosage: (10 MG BID)
     Dates: start: 20100701
  2. NEURONTIN [Suspect]
     Indication: PRODUCT USED FOR UNKNOWN INDICATION
     Dosage: (3600 MG, 3600 MG QD), (2400 MG, 2400 MG QD)
  3. MARIJUANA [Suspect]
     Indication: PRODUCT USED FOR UNKNOWN INDICATION
     Dosage: (DF)
  4. TYSABRI [Concomitant]

REACTIONS (25)
  - ALCOHOL USE [None]
  - AMNESIA [None]
  - BURNS SECOND DEGREE [None]
  - CERVICAL MYELOPATHY [None]
  - CHEST PAIN [None]
  - CONDITION AGGRAVATED [None]
  - CONFUSIONAL STATE [None]
  - CONVULSION [None]
  - DEPRESSED LEVEL OF CONSCIOUSNESS [None]
  - DRUG ABUSE [None]
  - DRUG INTERACTION [None]
  - DRUG TOXICITY [None]
  - DYSPHEMIA [None]
  - DYSPNOEA [None]
  - FALL [None]
  - FATIGUE [None]
  - GAIT DISTURBANCE [None]
  - LETHARGY [None]
  - MENTAL STATUS CHANGES [None]
  - MYELITIS [None]
  - NUCLEAR MAGNETIC RESONANCE IMAGING ABNORMAL [None]
  - SENSORY DISTURBANCE [None]
  - SOMNOLENCE [None]
  - SPEECH DISORDER [None]
  - SPINAL CORD OEDEMA [None]
